FAERS Safety Report 21974467 (Version 1)
Quarter: 2023Q1

REPORT INFORMATION
  Report Type: Spontaneous
  Country: US (occurrence: US)
  Receive Date: 20230209
  Receipt Date: 20230209
  Transmission Date: 20230418
  Serious: No
  Sender: FDA-Public Use
  Company Number: US-MYLANLABS-2023M1013986

PATIENT
  Sex: Female

DRUGS (1)
  1. XANAX [Suspect]
     Active Substance: ALPRAZOLAM
     Indication: Product used for unknown indication
     Dosage: 1 DOSAGE FORM, BID (TAKE 1 TWICE DAILY AS NEEDED)
     Route: 065

REACTIONS (1)
  - Off label use [Unknown]
